FAERS Safety Report 24691364 (Version 6)
Quarter: 2024Q4

REPORT INFORMATION
  Report Type: Spontaneous
  Country: US (occurrence: US)
  Receive Date: 20241203
  Receipt Date: 20241231
  Transmission Date: 20250114
  Serious: Yes (Other)
  Sender: ROCHE
  Company Number: US-ROCHE-10000144614

PATIENT
  Age: 61 Year
  Sex: Male
  Weight: 88 kg

DRUGS (5)
  1. OBINUTUZUMAB [Suspect]
     Active Substance: OBINUTUZUMAB
     Indication: Product used for unknown indication
     Route: 065
     Dates: start: 202311
  2. ALLOPURINOL [Suspect]
     Active Substance: ALLOPURINOL
     Indication: Product used for unknown indication
     Route: 065
  3. VENETOCLAX [Suspect]
     Active Substance: VENETOCLAX
     Indication: Chronic lymphocytic leukaemia
     Route: 048
     Dates: start: 202309
  4. OCTAGAM IMMUNE GLOBULIN (HUMAN) [Suspect]
     Active Substance: HUMAN IMMUNOGLOBULIN G
     Indication: Product used for unknown indication
     Dosage: SUBSEQUENT DOSE WAS GIVEN ON 11-JUL-2024, 08-AUG-2024, 05-SEP-2024, 03-OCT-2024, 31-OCT-2024.
     Route: 065
  5. OXYGEN [Concomitant]
     Active Substance: OXYGEN

REACTIONS (10)
  - Secondary immunodeficiency [Unknown]
  - Drug eruption [Unknown]
  - Rash [Recovered/Resolved]
  - Diarrhoea [Unknown]
  - Pruritus [Recovering/Resolving]
  - Gout [Unknown]
  - Lymphocytosis [Recovered/Resolved]
  - Nausea [Unknown]
  - Vomiting [Unknown]
  - Flushing [Unknown]

NARRATIVE: CASE EVENT DATE: 20231101
